FAERS Safety Report 23605045 (Version 1)
Quarter: 2024Q1

REPORT INFORMATION
  Report Type: Spontaneous
  Country: US (occurrence: None)
  Receive Date: 20240306
  Receipt Date: 20240306
  Transmission Date: 20240409
  Serious: Yes (Other)
  Sender: FDA-Public Use
  Company Number: None

PATIENT
  Age: 45 Year
  Sex: Female

DRUGS (2)
  1. AMBRISENTAN [Suspect]
     Active Substance: AMBRISENTAN
     Indication: Pulmonary hypertension
     Dosage: FREQUENCY : DAILY;?
     Route: 048
     Dates: start: 20240113, end: 20240119
  2. OPSUMIT [Suspect]
     Active Substance: MACITENTAN

REACTIONS (2)
  - Swelling face [None]
  - Therapy cessation [None]

NARRATIVE: CASE EVENT DATE: 20240306
